FAERS Safety Report 5623873-3 (Version None)
Quarter: 2008Q1

REPORT INFORMATION
  Report Type: 
  Country: None (occurrence: None)
  Receive Date: 20080207
  Receipt Date: 20080122
  Transmission Date: 20080703
  Serious: Yes (Life-Threatening, Hospitalization, Other)
  Sender: FDA-Public Use
  Company Number: DSA_31351_2008

PATIENT
  Age: 74 Year
  Sex: Female

DRUGS (12)
  1. ENALAPRIL MALEATE [Suspect]
     Indication: HYPERTENSION
     Dosage: 10 MG QD ORAL
     Route: 048
     Dates: start: 20050420, end: 20050504
  2. CLEMASTINE FURMARATE [Suspect]
     Indication: HYPERSENSITIVITY
     Dosage: 1 DF QD ORAL
     Route: 048
     Dates: start: 20050420, end: 20050504
  3. XUSAL  (XUSAL - LEVOCETIRIZINE DIHYDROCHLIRDE) 5 MG [Suspect]
     Indication: HYPERSENSITIVITY
     Dosage: 5 MG QD ORAL
     Route: 048
     Dates: start: 20050420, end: 20050504
  4. SOBELIN /001660002/ (SOBELIN - CLINDAMYCIN) (NOT SPECIFIED) [Suspect]
     Indication: INFECTION
     Dosage: DF ORAL
     Route: 048
     Dates: start: 20050420, end: 20050504
  5. CIPROFLOXACIN [Suspect]
     Indication: INFECTION
     Dosage: DF ORAL
     Route: 048
     Dates: start: 20050420, end: 20050504
  6. PANTOZOL /01263202/ (PANTOZOL - PANTOPRZOLE SODIUM 40 MG (NOT SPECIFIE [Suspect]
     Indication: PROPHYLAXIS AGAINST GASTROINTESTINAL ULCER
     Dosage: 40 MG QD ORAL
     Route: 048
     Dates: start: 20050420, end: 20050504
  7. DICLAC /00372302/ [Concomitant]
  8. BELOC-ZOK [Concomitant]
  9. EUTHYROX [Concomitant]
  10. ENABETA COMP [Concomitant]
  11. TRAMADOL HCL [Concomitant]
  12. KALINOR /00031402/ [Concomitant]

REACTIONS (1)
  - TOXIC EPIDERMAL NECROLYSIS [None]
